FAERS Safety Report 4867232-X (Version None)
Quarter: 2005Q4

REPORT INFORMATION
  Report Type: 
  Country: None (occurrence: None)
  Receive Date: 20051222
  Receipt Date: 20051108
  Transmission Date: 20060501
  Serious: Yes (Death)
  Sender: FDA-Public Use
  Company Number: MK200512-0226-1

PATIENT
  Age: 63 Year
  Sex: Male

DRUGS (4)
  1. APAP/BUTAL/CAFFEINE TABS [Suspect]
     Dates: end: 20040101
  2. CLONAZEPAM [Concomitant]
  3. ACTIVATED CHARCOAL [Suspect]
  4. ZOLPIDEM TARTRATE [Suspect]

REACTIONS (9)
  - ANOXIC ENCEPHALOPATHY [None]
  - DEPRESSED LEVEL OF CONSCIOUSNESS [None]
  - DRUG INEFFECTIVE [None]
  - FEEDING TUBE COMPLICATION [None]
  - HYPERTENSION [None]
  - MEDICATION ERROR [None]
  - OVERDOSE [None]
  - PNEUMONITIS [None]
  - TACHYCARDIA [None]
